FAERS Safety Report 7431719-6 (Version None)
Quarter: 2011Q2

REPORT INFORMATION
  Report Type: 
  Country: None (occurrence: None)
  Receive Date: 20110422
  Receipt Date: 20110414
  Transmission Date: 20111010
  Serious: Yes (Hospitalization)
  Sender: FDA-Public Use
  Company Number: US-BIOGENIDEC-2011BI005554

PATIENT
  Age: 62 Year
  Sex: Male

DRUGS (3)
  1. AVONEX [Suspect]
     Route: 030
     Dates: start: 20090614
  2. AVONEX [Suspect]
     Indication: MULTIPLE SCLEROSIS
     Route: 030
     Dates: start: 20060901
  3. BLOOD THINNING SHOT (NOS) [Concomitant]
     Indication: THROMBOSIS PROPHYLAXIS

REACTIONS (7)
  - GAIT DISTURBANCE [None]
  - INJECTION SITE CELLULITIS [None]
  - STAPHYLOCOCCAL ABSCESS [None]
  - LYMPHOEDEMA [None]
  - INJURY ASSOCIATED WITH DEVICE [None]
  - INJECTION SITE INFECTION [None]
  - TINNITUS [None]
